FAERS Safety Report 7281724-8 (Version None)
Quarter: 2011Q1

REPORT INFORMATION
  Report Type: 
  Country: None (occurrence: None)
  Receive Date: 20110208
  Receipt Date: 20110202
  Transmission Date: 20110831
  Serious: Yes (Hospitalization)
  Sender: FDA-Public Use
  Company Number: IT-ABBOTT-11P-083-0702473-00

PATIENT
  Sex: Male

DRUGS (1)
  1. HUMIRA [Suspect]
     Indication: CROHN'S DISEASE
     Dosage: 1 WEEK
     Route: 058
     Dates: start: 20090611, end: 20100824

REACTIONS (4)
  - DEMYELINATION [None]
  - CHEST DISCOMFORT [None]
  - MOVEMENT DISORDER [None]
  - OSTEOMYELITIS [None]
